FAERS Safety Report 7119269-8 (Version None)
Quarter: 2010Q4

REPORT INFORMATION
  Report Type: 
  Country: None (occurrence: None)
  Receive Date: 20101123
  Receipt Date: 20101112
  Transmission Date: 20110411
  Serious: Yes (Hospitalization)
  Sender: FDA-Public Use
  Company Number: AU-ELI_LILLY_AND_COMPANY-AU201011003582

PATIENT
  Sex: Female

DRUGS (2)
  1. HUMATROPE [Suspect]
     Dosage: UNK, UNKNOWN
     Route: 065
     Dates: start: 20090101
  2. PREDNISOLONE [Concomitant]
     Dosage: UNK, UNKNOWN
     Route: 065

REACTIONS (2)
  - COLITIS ULCERATIVE [None]
  - INTESTINAL PERFORATION [None]
